FAERS Safety Report 10358356 (Version 2)
Quarter: 2014Q3

REPORT INFORMATION
  Report Type: Report from Study
  Country: US (occurrence: US)
  Receive Date: 20140801
  Receipt Date: 20140806
  Transmission Date: 20150326
  Serious: Yes (Hospitalization, Other)
  Sender: FDA-Public Use
  Company Number: US-ABBVIE-14P-163-1265138-00

PATIENT
  Age: 50 Year
  Sex: Male

DRUGS (8)
  1. PREDNISONE. [Concomitant]
     Active Substance: PREDNISONE
     Indication: CROHN^S DISEASE
  2. PEARLS ACIDOPHILUS [Concomitant]
     Indication: CROHN^S DISEASE
     Dosage: DAILY
  3. VITAMIN C [Concomitant]
     Active Substance: ASCORBIC ACID
     Indication: DYSPEPSIA
     Dosage: DAILY
  4. HUMIRA [Suspect]
     Active Substance: ADALIMUMAB
     Dates: start: 20140710
  5. MULTIVITAMINS [Concomitant]
     Active Substance: VITAMINS
     Indication: DYSPEPSIA
     Dosage: DAILY
  6. HUMIRA [Suspect]
     Active Substance: ADALIMUMAB
     Indication: CROHN^S DISEASE
     Dates: start: 20140626, end: 20140626
  7. MAGNESIUM [Concomitant]
     Active Substance: MAGNESIUM
     Indication: DYSPEPSIA
  8. ANDROGEL [Concomitant]
     Active Substance: TESTOSTERONE
     Indication: HYPOGONADISM

REACTIONS (9)
  - Abdominal pain [Not Recovered/Not Resolved]
  - Fistula [Not Recovered/Not Resolved]
  - Diarrhoea [Not Recovered/Not Resolved]
  - Blood potassium decreased [Not Recovered/Not Resolved]
  - Blood magnesium decreased [Not Recovered/Not Resolved]
  - Small intestinal obstruction [Not Recovered/Not Resolved]
  - Abdominal distension [Not Recovered/Not Resolved]
  - Gastrointestinal sounds abnormal [Not Recovered/Not Resolved]
  - Large intestinal stenosis [Not Recovered/Not Resolved]

NARRATIVE: CASE EVENT DATE: 20140626
